FAERS Safety Report 7539078-5 (Version None)
Quarter: 2011Q2

REPORT INFORMATION
  Report Type: 
  Country: None (occurrence: None)
  Receive Date: 20110610
  Receipt Date: 20020104
  Transmission Date: 20111010
  Serious: Yes (Death)
  Sender: FDA-Public Use
  Company Number: PHFR2001GB03445

PATIENT
  Sex: Male

DRUGS (6)
  1. ALUDROX SA [Concomitant]
     Indication: DYSPEPSIA
     Dosage: 30 ML, AS REQUIRED
     Dates: start: 20000601, end: 20011124
  2. AMISULPRIDE [Concomitant]
     Indication: PSYCHOTIC DISORDER
     Dosage: 300 MG
     Route: 048
     Dates: start: 20010409, end: 20011124
  3. HYOSCINE HYDROBROMIDE [Concomitant]
     Indication: SALIVARY HYPERSECRETION
     Route: 048
     Dates: start: 20000601, end: 20011124
  4. MOVIPREP [Concomitant]
     Indication: DRUG ABUSE
     Route: 048
     Dates: start: 20010725, end: 20011124
  5. CLOZAPINE [Suspect]
     Indication: SCHIZOPHRENIA
     Route: 048
     Dates: start: 19940801
  6. LANSOPRAZOLE [Concomitant]
     Indication: GASTROOESOPHAGEAL REFLUX DISEASE
     Dosage: 30 MG
     Route: 048
     Dates: start: 20010725, end: 20011124

REACTIONS (1)
  - CARDIAC DISORDER [None]
